FAERS Safety Report 19778946 (Version 1)
Quarter: 2021Q3

REPORT INFORMATION
  Report Type: Spontaneous
  Country: US (occurrence: US)
  Receive Date: 20210902
  Receipt Date: 20210902
  Transmission Date: 20211014
  Serious: Yes (Death, Hospitalization)
  Sender: FDA-Public Use
  Company Number: US-MYLANLABS-2021M1057339

PATIENT
  Age: 53 Year
  Sex: Female

DRUGS (26)
  1. METHYLPREDNISOLONE. [Suspect]
     Active Substance: METHYLPREDNISOLONE
     Dosage: 1 GRAM, QD
     Route: 065
  2. LEVETIRACETAM. [Concomitant]
     Active Substance: LEVETIRACETAM
     Indication: PROPHYLAXIS
     Route: 065
  3. PROPOFOL. [Concomitant]
     Active Substance: PROPOFOL
     Indication: EPILEPSY
     Dosage: INFUSION
  4. FLUDARABINE [Suspect]
     Active Substance: FLUDARABINE PHOSPHATE
     Indication: LYMPHODEPLETION
     Route: 065
  5. FLUDARABINE [Suspect]
     Active Substance: FLUDARABINE PHOSPHATE
     Indication: CHEMOTHERAPY
  6. TOCILIZUMAB. [Suspect]
     Active Substance: TOCILIZUMAB
     Indication: CYTOKINE RELEASE SYNDROME
     Dosage: ONE DOSE
     Route: 065
  7. METHYLPREDNISOLONE. [Suspect]
     Active Substance: METHYLPREDNISOLONE
     Indication: CYTOKINE RELEASE SYNDROME
     Dosage: 50 MILLIGRAM,ONE DOSE
     Route: 065
  8. FOSCARNET [Concomitant]
     Active Substance: FOSCARNET
     Indication: PROPHYLAXIS
     Route: 065
  9. PENTAMIDINE [Concomitant]
     Active Substance: PENTAMIDINE
     Indication: PROPHYLAXIS
     Route: 065
  10. LACTULOSE. [Concomitant]
     Active Substance: LACTULOSE
     Indication: PRODUCT USED FOR UNKNOWN INDICATION
     Route: 048
  11. LACOSAMIDE. [Concomitant]
     Active Substance: LACOSAMIDE
     Indication: EPILEPSY
     Route: 065
  12. AMPHOTERICIN B. [Concomitant]
     Active Substance: AMPHOTERICIN B
     Indication: EVIDENCE BASED TREATMENT
     Route: 065
  13. ARGININE [Concomitant]
     Active Substance: ARGININE
     Indication: DRUG THERAPY
     Dosage: INFUSION
  14. CYCLOPHOSPHAMIDE. [Suspect]
     Active Substance: CYCLOPHOSPHAMIDE
     Indication: LYMPHODEPLETION
     Route: 065
  15. DEXTROSE. [Concomitant]
     Active Substance: DEXTROSE
     Indication: DRUG THERAPY
     Dosage: INTRAVENOUS INFUSION
     Route: 042
  16. LEVOCARNITINE. [Concomitant]
     Active Substance: LEVOCARNITINE
     Indication: DRUG THERAPY
     Route: 065
  17. PHENYLBUTYRATE SODIUM [Concomitant]
     Indication: DRUG THERAPY
     Route: 065
  18. CYCLOPHOSPHAMIDE. [Suspect]
     Active Substance: CYCLOPHOSPHAMIDE
     Indication: CHEMOTHERAPY
  19. ISAVUCONAZOLE [Concomitant]
     Active Substance: ISAVUCONAZOLE
     Indication: PROPHYLAXIS
     Route: 065
  20. LINEZOLID. [Concomitant]
     Active Substance: LINEZOLID
     Indication: PROPHYLAXIS
     Route: 065
  21. PENTOBARBITAL. [Concomitant]
     Active Substance: PENTOBARBITAL
     Indication: STATUS EPILEPTICUS
     Route: 065
  22. LEVOFLOXACIN. [Concomitant]
     Active Substance: LEVOFLOXACIN
     Indication: PROPHYLAXIS
     Route: 065
  23. MEROPENEM. [Concomitant]
     Active Substance: MEROPENEM
     Indication: PROPHYLAXIS
     Route: 065
  24. DOXYCYCLINE. [Concomitant]
     Active Substance: DOXYCYCLINE
     Indication: PROPHYLAXIS
     Route: 065
  25. AVIBACTAM W/CEFTAZIDIME [Concomitant]
     Active Substance: AVIBACTAM SODIUM\CEFTAZIDIME
     Indication: PROPHYLAXIS
     Route: 065
  26. ACYCLOVIR                          /00587301/ [Concomitant]
     Active Substance: ACYCLOVIR
     Indication: EVIDENCE BASED TREATMENT
     Route: 065

REACTIONS (14)
  - Hyperammonaemia [Fatal]
  - Hepatic function abnormal [Unknown]
  - Enterococcal infection [Unknown]
  - Agitation [Unknown]
  - Ureaplasma infection [Unknown]
  - Sepsis [Unknown]
  - Generalised oedema [Unknown]
  - Restlessness [Unknown]
  - Depressed level of consciousness [Unknown]
  - Status epilepticus [Recovered/Resolved]
  - Brain oedema [Unknown]
  - Hypoalbuminaemia [Unknown]
  - Escherichia bacteraemia [Recovered/Resolved]
  - Pneumonia [Unknown]
